FAERS Safety Report 8022064-9 (Version None)
Quarter: 2012Q1

REPORT INFORMATION
  Report Type: 
  Country: None (occurrence: None)
  Receive Date: 20120104
  Receipt Date: 20111229
  Transmission Date: 20120608
  Serious: Yes (Hospitalization)
  Sender: FDA-Public Use
  Company Number: PHEH2011US011115

PATIENT
  Sex: Male
  Weight: 82.993 kg

DRUGS (22)
  1. EXJADE [Suspect]
     Indication: IRON OVERLOAD
  2. ASPIRIN [Concomitant]
  3. HUMULIN R [Concomitant]
  4. CARVEDILOL [Concomitant]
  5. CALCIUM ACETATE [Concomitant]
  6. LOSARTAN POTASSIUM [Concomitant]
  7. CILOSTAZOL [Concomitant]
  8. VITAMIN D [Concomitant]
  9. DULCOSATE SODIUM [Concomitant]
  10. REVLIMID [Suspect]
     Dosage: UNK
     Route: 048
  11. SYSTANE (PROPYLENE GLYCOL/MACROGOL) [Concomitant]
  12. LIPITOR [Concomitant]
  13. RANEXA [Concomitant]
  14. VICODIN [Concomitant]
  15. METAMUCIL-2 [Concomitant]
  16. PAROXETINE [Concomitant]
  17. EXJADE [Suspect]
     Indication: HAEMOCHROMATOSIS
     Dosage: 1500 MG, DAILY
     Route: 048
     Dates: start: 20111006
  18. LANTUS [Concomitant]
  19. LASIX [Concomitant]
  20. MOMETASONE FUROATE [Concomitant]
  21. SPIROLONE [Concomitant]
  22. PRILOSEC [Concomitant]

REACTIONS (7)
  - CARDIAC FAILURE CONGESTIVE [None]
  - ARRHYTHMIA [None]
  - OEDEMA PERIPHERAL [None]
  - ORTHOPNOEA [None]
  - DECREASED APPETITE [None]
  - DYSPNOEA [None]
  - FATIGUE [None]
